FAERS Safety Report 18619652 (Version 8)
Quarter: 2021Q1

REPORT INFORMATION
  Report Type: Spontaneous
  Country: AU (occurrence: AU)
  Receive Date: 20201215
  Receipt Date: 20210329
  Transmission Date: 20210419
  Serious: Yes (Hospitalization, Other)
  Sender: FDA-Public Use
  Company Number: AU-PFIZER INC-2020465514

PATIENT
  Age: 73 Year
  Sex: Male

DRUGS (21)
  1. APOMINE [Suspect]
     Active Substance: APOMORPHINE HYDROCHLORIDE
     Dosage: 6MG PRN/NOCTE
     Dates: start: 20201109
  2. APOMINE [Suspect]
     Active Substance: APOMORPHINE HYDROCHLORIDE
     Dosage: 2MG/HR
     Dates: start: 20201109
  3. SINEMET [Concomitant]
     Active Substance: CARBIDOPA\LEVODOPA
     Dosage: 250 MG, 1X/DAY
  4. APOMINE [Suspect]
     Active Substance: APOMORPHINE HYDROCHLORIDE
     Dosage: 6MG THREE OR FOUR TIMES A DAY INTERMITTENT INJECTION
  5. NEXIUM I.V. [Concomitant]
     Active Substance: ESOMEPRAZOLE SODIUM
     Dosage: 20 MG, 1X/DAY
  6. LYRICA [Suspect]
     Active Substance: PREGABALIN
     Dosage: UNK
  7. ENDEP [Suspect]
     Active Substance: AMITRIPTYLINE HYDROCHLORIDE
     Dosage: 25 MG
  8. APOMINE [Suspect]
     Active Substance: APOMORPHINE HYDROCHLORIDE
     Dosage: 3MG/HR DAY 2MG/HR NIGHT
     Dates: start: 202012
  9. METOPROLOL. [Concomitant]
     Active Substance: METOPROLOL
     Dosage: 25 MG, 2X/DAY
  10. STALEVO [Concomitant]
     Active Substance: CARBIDOPA\ENTACAPONE\LEVODOPA
     Dosage: 1 DF, 4X/DAY
  11. AZILECT [Concomitant]
     Active Substance: RASAGILINE MESYLATE
     Dosage: 1 MG, 1X/DAY
  12. QUETIAPINE. [Concomitant]
     Active Substance: QUETIAPINE
     Dosage: 12.5 MG, 1X/DAY
  13. APOMINE [Suspect]
     Active Substance: APOMORPHINE HYDROCHLORIDE
     Dosage: 5 MG 3?4 TIMES DAILY
  14. FUSEMIDE [Concomitant]
     Dosage: 20 MG, 1X/DAY
  15. SPIRACTIN [SPIRONOLACTONE] [Concomitant]
     Active Substance: SPIRONOLACTONE
     Dosage: 12.5 MG, 1X/DAY
  16. MAGNESIUM [Concomitant]
     Active Substance: MAGNESIUM
     Dosage: 500 MG, 1X/DAY
  17. APOMINE [Suspect]
     Active Substance: APOMORPHINE HYDROCHLORIDE
     Dosage: 6 MG, 3X/DAY
  18. APOMINE [Suspect]
     Active Substance: APOMORPHINE HYDROCHLORIDE
     Dosage: 3MG WAKING HOURS INFUSION
  19. LYRICA [Suspect]
     Active Substance: PREGABALIN
     Dosage: 75 MG
  20. CODEINE PHOSPHATE [Concomitant]
     Active Substance: CODEINE PHOSPHATE
     Dosage: 150 MG, DAILY
  21. PANADOL [Concomitant]
     Active Substance: ACETAMINOPHEN
     Dosage: 2 DF, 3X/DAY

REACTIONS (20)
  - Fall [Unknown]
  - Dyskinesia [Unknown]
  - Sleep disorder [Unknown]
  - Contusion [Unknown]
  - Skin reaction [Unknown]
  - Hypotension [Unknown]
  - Freezing phenomenon [Unknown]
  - Asthenia [Unknown]
  - Hypersexuality [Unknown]
  - Hallucination [Recovered/Resolved]
  - Confusional state [Unknown]
  - General physical health deterioration [Unknown]
  - Arthralgia [Unknown]
  - Movement disorder [Unknown]
  - Skin disorder [Unknown]
  - Loss of personal independence in daily activities [Unknown]
  - Pain [Unknown]
  - Alopecia [Unknown]
  - Parkinson^s disease [Unknown]
  - Dizziness [Recovering/Resolving]
